FAERS Safety Report 8306796-0 (Version None)
Quarter: 2012Q2

REPORT INFORMATION
  Report Type: 
  Country: None (occurrence: None)
  Receive Date: 20120424
  Receipt Date: 20120418
  Transmission Date: 20120825
  Serious: No
  Sender: FDA-Public Use
  Company Number: US-PFIZER INC-2012097486

PATIENT

DRUGS (5)
  1. FELDENE [Suspect]
     Dosage: UNK
  2. GLUCOTROL [Suspect]
     Dosage: UNK
  3. CALAN [Suspect]
     Dosage: UNK
  4. LIPITOR [Suspect]
     Dosage: UNK
  5. XALATAN [Suspect]
     Dosage: UNK

REACTIONS (1)
  - ARTHRITIS [None]
